FAERS Safety Report 9922352 (Version 1)
Quarter: 2014Q1

REPORT INFORMATION
  Report Type: Spontaneous
  Country: US (occurrence: None)
  Receive Date: 20140224
  Receipt Date: 20140224
  Transmission Date: 20141002
  Serious: Yes (Disabling)
  Sender: FDA-Public Use
  Company Number: None

PATIENT
  Age: 48 Year
  Sex: Female
  Weight: 72.58 kg

DRUGS (1)
  1. SUMATRIPTAN [Suspect]
     Indication: MIGRAINE
     Dosage: 2 PILLS PER MIGRAINE EPISODE
     Route: 048
     Dates: start: 20131113, end: 20131204

REACTIONS (6)
  - Vomiting [None]
  - Nausea [None]
  - Diarrhoea [None]
  - Myalgia [None]
  - Oropharyngeal pain [None]
  - Abdominal pain upper [None]
